FAERS Safety Report 8881752 (Version 2)
Quarter: 2012Q4

REPORT INFORMATION
  Report Type: Report from Study
  Country: IL (occurrence: IL)
  Receive Date: 20121102
  Receipt Date: 20121108
  Transmission Date: 20130627
  Serious: Yes (Hospitalization)
  Sender: FDA-Public Use
  Company Number: IL-BRISTOL-MYERS SQUIBB COMPANY-17075813

PATIENT
  Age: 82 Year
  Sex: Male

DRUGS (8)
  1. BLINDED: SAXAGLIPTIN [Suspect]
     Indication: TYPE 2 DIABETES MELLITUS
     Dosage: last dose 06Feb11
     Dates: start: 20110203
  2. GLUCOPHAGE [Suspect]
     Indication: TYPE 2 DIABETES MELLITUS
     Dates: start: 20111002
  3. NOVONORM [Suspect]
     Indication: TYPE 2 DIABETES MELLITUS
     Dosage: before randz-15Jan12=5mg,8Mar12-cont=6mg
  4. BLINDED: PLACEBO [Suspect]
     Indication: TYPE 2 DIABETES MELLITUS
     Dosage: last dose 06Feb11
     Dates: start: 20110203
  5. ALDACTONE [Suspect]
  6. ENALAPRIL [Suspect]
  7. FUSID [Suspect]
  8. ASPIRIN [Concomitant]

REACTIONS (2)
  - Musculoskeletal chest pain [Recovered/Resolved]
  - Renal failure acute [Recovered/Resolved]
